FAERS Safety Report 25303055 (Version 1)
Quarter: 2025Q2

REPORT INFORMATION
  Report Type: Report from Study
  Country: US (occurrence: US)
  Receive Date: 20250512
  Receipt Date: 20250512
  Transmission Date: 20250716
  Serious: Yes (Hospitalization)
  Sender: MALLINCKRODT
  Company Number: US-MALLINCKRODT-MNK202502686

PATIENT
  Sex: Female

DRUGS (1)
  1. CORTICOTROPIN [Suspect]
     Active Substance: CORTICOTROPIN
     Indication: Systemic lupus erythematosus
     Dates: start: 20240119

REACTIONS (6)
  - White blood cell count abnormal [Unknown]
  - Laboratory test abnormal [Unknown]
  - Memory impairment [Unknown]
  - Immune system disorder [Unknown]
  - Respiratory syncytial virus infection [Recovering/Resolving]
  - Nasopharyngitis [Recovering/Resolving]
